FAERS Safety Report 16701140 (Version 3)
Quarter: 2019Q4

REPORT INFORMATION
  Report Type: Report from Study
  Country: US (occurrence: US)
  Receive Date: 20190814
  Receipt Date: 20191017
  Transmission Date: 20200122
  Serious: Yes (Other)
  Sender: FDA-Public Use
  Company Number: US-AMGEN-USASP2019129157

PATIENT
  Sex: Male

DRUGS (2)
  1. CARFILZOMIB [Suspect]
     Active Substance: CARFILZOMIB
     Indication: PLASMA CELL MYELOMA
     Dosage: UNK, (2 CONSECUTIVE DAYS EVERY WEEK)
     Route: 065
  2. CARFILZOMIB [Suspect]
     Active Substance: CARFILZOMIB
     Dosage: UNK, (2 CONSECUTIVE DAYS EVERY WEEK)
     Route: 065

REACTIONS (3)
  - Fatigue [Recovering/Resolving]
  - Neuropathy peripheral [Recovering/Resolving]
  - Nausea [Recovering/Resolving]
